FAERS Safety Report 9176913 (Version 1)
Quarter: 2013Q1

REPORT INFORMATION
  Report Type: Report from Study
  Country: US (occurrence: US)
  Receive Date: 20130321
  Receipt Date: 20130321
  Transmission Date: 20140127
  Serious: Yes (Other)
  Sender: FDA-Public Use
  Company Number: US-ABBOTT-13P-163-1064200-00

PATIENT
  Sex: Female

DRUGS (3)
  1. HUMIRA [Suspect]
     Indication: CROHN^S DISEASE
     Dates: start: 201010, end: 20130221
  2. PENTASA [Concomitant]
     Indication: CROHN^S DISEASE
  3. PROPRANOLOL [Concomitant]
     Indication: HYPERTENSION

REACTIONS (2)
  - Foot deformity [Recovered/Resolved]
  - Pain in extremity [Recovering/Resolving]
